FAERS Safety Report 5817610-7 (Version None)
Quarter: 2008Q3

REPORT INFORMATION
  Report Type: 
  Country: None (occurrence: None)
  Receive Date: 20080722
  Receipt Date: 20080713
  Transmission Date: 20090109
  Serious: Yes (Hospitalization, Other)
  Sender: FDA-Public Use
  Company Number: US-AMGEN-QUU294244

PATIENT
  Sex: Female

DRUGS (7)
  1. NEULASTA [Suspect]
     Indication: CHEMOTHERAPY
     Route: 065
     Dates: start: 20070101
  2. COUMADIN [Concomitant]
  3. COUMADIN [Concomitant]
     Route: 048
  4. COUMADIN [Concomitant]
  5. DOXIL [Concomitant]
     Dates: start: 20070101
  6. TAXOL [Concomitant]
     Dates: start: 20080326
  7. CISPLATIN [Concomitant]
     Route: 033
     Dates: start: 20080327

REACTIONS (8)
  - ABDOMINAL PAIN [None]
  - BACK PAIN [None]
  - BLOOD MAGNESIUM DECREASED [None]
  - BONE PAIN [None]
  - FEELING ABNORMAL [None]
  - MUSCULOSKELETAL CHEST PAIN [None]
  - PELVIC NEOPLASM [None]
  - SYNCOPE [None]
